FAERS Safety Report 6102960-X (Version None)
Quarter: 2009Q1

REPORT INFORMATION
  Report Type: 
  Country: None (occurrence: None)
  Receive Date: 20090305
  Receipt Date: 20090219
  Transmission Date: 20090719
  Serious: No
  Sender: FDA-Public Use
  Company Number: PHHY2009JP02558

PATIENT
  Sex: Female

DRUGS (7)
  1. DIOVAN [Suspect]
     Indication: HYPERTENSION
     Dosage: 40 MG, QD
     Route: 048
     Dates: start: 20070921, end: 20080229
  2. DIOVAN [Suspect]
     Dosage: 80 MG, QD
     Route: 048
     Dates: start: 20080229, end: 20080404
  3. MELBIN [Concomitant]
     Dosage: 500 MG, UNK
     Route: 048
     Dates: start: 20070827
  4. LASIX [Concomitant]
     Dosage: 20 MG, UNK
     Route: 048
     Dates: start: 20071214
  5. PERSANTIN-L [Concomitant]
     Dosage: 150 MG, UNK
     Route: 048
     Dates: start: 20080229, end: 20080404
  6. ALDACTONE [Concomitant]
     Dosage: 25 MG, UNK
     Route: 048
     Dates: start: 20080404
  7. NOVOLIN [Concomitant]
     Dosage: UNK
     Route: 058
     Dates: start: 20070827

REACTIONS (8)
  - BETA 2 MICROGLOBULIN INCREASED [None]
  - BETA-N-ACETYL-D-GLUCOSAMINIDASE INCREASED [None]
  - BLOOD CHOLESTEROL INCREASED [None]
  - BLOOD CREATINE PHOSPHOKINASE INCREASED [None]
  - BLOOD CREATININE INCREASED [None]
  - BRAIN NATRIURETIC PEPTIDE INCREASED [None]
  - OEDEMA [None]
  - PROTEIN URINE PRESENT [None]
